FAERS Safety Report 21950020 (Version 1)
Quarter: 2023Q1

REPORT INFORMATION
  Report Type: Spontaneous
  Country: JP (occurrence: JP)
  Receive Date: 20230203
  Receipt Date: 20230203
  Transmission Date: 20230417
  Serious: Yes (Other)
  Sender: FDA-Public Use
  Company Number: JP-MYLANLABS-2023M1011425

PATIENT
  Age: 87 Year
  Sex: Female

DRUGS (32)
  1. PREGABALIN [Suspect]
     Active Substance: PREGABALIN
     Indication: Pain in extremity
     Dosage: 25 MILLIGRAM
     Route: 065
  2. PREGABALIN [Suspect]
     Active Substance: PREGABALIN
     Indication: Dyskinesia
  3. PREGABALIN [Suspect]
     Active Substance: PREGABALIN
     Indication: Dementia with Lewy bodies
  4. L DOPA [Suspect]
     Active Substance: LEVODOPA
     Indication: Parkinsonism
     Dosage: 100 MILLIGRAM
     Route: 065
  5. DICLOFENAC [Suspect]
     Active Substance: DICLOFENAC
     Indication: Pain in extremity
     Dosage: UNK
     Route: 065
  6. DICLOFENAC [Suspect]
     Active Substance: DICLOFENAC
     Indication: Dyskinesia
  7. DICLOFENAC [Suspect]
     Active Substance: DICLOFENAC
     Indication: Dementia with Lewy bodies
  8. TRAMADOL [Suspect]
     Active Substance: TRAMADOL
     Indication: Pain in extremity
     Dosage: UNK
     Route: 065
  9. TRAMADOL [Suspect]
     Active Substance: TRAMADOL
     Indication: Dyskinesia
  10. TRAMADOL [Suspect]
     Active Substance: TRAMADOL
     Indication: Dementia with Lewy bodies
  11. VALPROIC ACID [Suspect]
     Active Substance: VALPROIC ACID
     Indication: Pain in extremity
     Dosage: 400 MILLIGRAM
     Route: 065
  12. VALPROIC ACID [Suspect]
     Active Substance: VALPROIC ACID
     Indication: Dyskinesia
  13. VALPROIC ACID [Suspect]
     Active Substance: VALPROIC ACID
     Indication: Dementia with Lewy bodies
  14. CARBAMAZEPINE [Suspect]
     Active Substance: CARBAMAZEPINE
     Indication: Pain in extremity
     Dosage: 300 MILLIGRAM
     Route: 065
  15. CARBAMAZEPINE [Suspect]
     Active Substance: CARBAMAZEPINE
     Indication: Dyskinesia
  16. CARBAMAZEPINE [Suspect]
     Active Substance: CARBAMAZEPINE
     Indication: Dementia with Lewy bodies
  17. CLONAZEPAM [Suspect]
     Active Substance: CLONAZEPAM
     Indication: Pain in extremity
     Dosage: 1 MILLIGRAM
     Route: 065
  18. CLONAZEPAM [Suspect]
     Active Substance: CLONAZEPAM
     Indication: Dyskinesia
  19. CLONAZEPAM [Suspect]
     Active Substance: CLONAZEPAM
     Indication: Dementia with Lewy bodies
  20. GABAPENTIN [Suspect]
     Active Substance: GABAPENTIN
     Indication: Pain in extremity
     Dosage: 1200 MILLIGRAM
     Route: 065
  21. GABAPENTIN [Suspect]
     Active Substance: GABAPENTIN
     Indication: Dyskinesia
  22. GABAPENTIN [Suspect]
     Active Substance: GABAPENTIN
     Indication: Dementia with Lewy bodies
  23. MIROGABALIN [Suspect]
     Active Substance: MIROGABALIN
     Indication: Pain in extremity
     Dosage: 10 MILLIGRAM
     Route: 065
  24. MIROGABALIN [Suspect]
     Active Substance: MIROGABALIN
     Indication: Dyskinesia
  25. MIROGABALIN [Suspect]
     Active Substance: MIROGABALIN
     Indication: Dementia with Lewy bodies
  26. DULOXETINE [Suspect]
     Active Substance: DULOXETINE
     Indication: Pain in extremity
     Dosage: 20 MILLIGRAM
     Route: 065
  27. DULOXETINE [Suspect]
     Active Substance: DULOXETINE
     Indication: Dyskinesia
  28. DULOXETINE [Suspect]
     Active Substance: DULOXETINE
     Indication: Dementia with Lewy bodies
  29. BOTULINUM TOXIN TYPE A [Suspect]
     Active Substance: BOTULINUM TOXIN TYPE A
     Indication: Pain in extremity
     Dosage: UNK
     Route: 065
  30. BOTULINUM TOXIN TYPE A [Suspect]
     Active Substance: BOTULINUM TOXIN TYPE A
     Indication: Dyskinesia
  31. BOTULINUM TOXIN TYPE A [Suspect]
     Active Substance: BOTULINUM TOXIN TYPE A
     Indication: Dementia with Lewy bodies
  32. PRAMIPEXOLE [Concomitant]
     Active Substance: PRAMIPEXOLE
     Indication: Restless legs syndrome
     Dosage: 0.5 MILLIGRAM
     Route: 065

REACTIONS (1)
  - Drug ineffective [Unknown]
